FAERS Safety Report 8482453-5 (Version None)
Quarter: 2012Q3

REPORT INFORMATION
  Report Type: 
  Country: None (occurrence: None)
  Receive Date: 20120702
  Receipt Date: 20120626
  Transmission Date: 20120928
  Serious: Yes (Hospitalization)
  Sender: FDA-Public Use
  Company Number: FR-GLAXOSMITHKLINE-B0810635A

PATIENT
  Sex: Female

DRUGS (10)
  1. VIMPAT [Concomitant]
     Indication: EPILEPSY
     Dosage: 150MG TWICE PER DAY
     Route: 048
     Dates: start: 20110301
  2. FOLIC ACID [Concomitant]
     Dosage: 1UNIT PER DAY
     Route: 048
  3. LAMICTAL [Suspect]
     Indication: EPILEPSY
     Route: 048
     Dates: start: 20120301
  4. CLOBAZAM [Suspect]
     Indication: EPILEPSY
     Dosage: 15MG PER DAY
     Route: 048
     Dates: start: 20120301, end: 20120401
  5. FERROUS SULFATE TAB [Concomitant]
     Indication: PROPHYLAXIS
     Dosage: 80MG PER DAY
     Route: 048
  6. LEVOTHYROXINE SODIUM [Concomitant]
     Indication: HYPOTHYROIDISM
     Dosage: 112.5MCG PER DAY
     Route: 048
  7. NEXIUM [Concomitant]
     Indication: PRODUCT USED FOR UNKNOWN INDICATION
     Dosage: 20MG PER DAY
     Route: 048
  8. AZINC [Concomitant]
     Dosage: 1UNIT PER DAY
     Route: 048
  9. KEPPRA [Concomitant]
     Indication: EPILEPSY
     Dosage: 500MG TWICE PER DAY
     Route: 048
     Dates: start: 20110301, end: 20120401
  10. CACIT [Concomitant]
     Indication: PROPHYLAXIS
     Dosage: 1000MG PER DAY
     Route: 048
     Dates: end: 20110128

REACTIONS (5)
  - INAPPROPRIATE SCHEDULE OF DRUG ADMINISTRATION [None]
  - HYPERKALAEMIA [None]
  - LEUKOPENIA [None]
  - THROMBOCYTOPENIA [None]
  - HEPATOCELLULAR INJURY [None]
